FAERS Safety Report 5298256-9 (Version None)
Quarter: 2007Q2

REPORT INFORMATION
  Report Type: 
  Country: None (occurrence: None)
  Receive Date: 20070416
  Receipt Date: 20070405
  Transmission Date: 20071010
  Serious: Yes (Death)
  Sender: FDA-Public Use
  Company Number: AU-BOEHRINGER INGELHEIM GMBH, GERMANY-2007-DE-02035GD

PATIENT
  Sex: Female

DRUGS (6)
  1. PARACETAMOL [Suspect]
  2. PROPRANOLOL [Suspect]
  3. DIAZEPAM [Suspect]
  4. NALTREXONE [Suspect]
     Indication: DRUG DEPENDENCE
  5. AMPHETAMINE SULFATE [Suspect]
  6. DOXEPIN HCL [Suspect]

REACTIONS (3)
  - ABDOMINAL PAIN [None]
  - DELIRIUM [None]
  - DRUG TOXICITY [None]
